FAERS Safety Report 15847593 (Version 8)
Quarter: 2020Q4

REPORT INFORMATION
  Report Type: Other
  Country: DE (occurrence: DE)
  Receive Date: 20190121
  Receipt Date: 20201201
  Transmission Date: 20210113
  Serious: No
  Sender: FDA-Public Use
  Company Number: DE-ROCHE-2245668

PATIENT
  Age: 44 Year
  Sex: Female

DRUGS (17)
  1. OCREVUS [Suspect]
     Active Substance: OCRELIZUMAB
     Dosage: MAINTENANCE DOSE?15/AUG/2019
     Route: 042
     Dates: start: 20181220
  2. OCREVUS [Suspect]
     Active Substance: OCRELIZUMAB
     Route: 042
     Dates: start: 20200727
  3. CORTISONE [Suspect]
     Active Substance: CORTISONE
     Dosage: 3X 2000 MG
     Route: 065
     Dates: start: 202007
  4. CORTISONE [Suspect]
     Active Substance: CORTISONE
     Dosage: ONCE
     Route: 065
     Dates: start: 202010
  5. VITAMIN D3 [Concomitant]
     Active Substance: CHOLECALCIFEROL
  6. CORTISONE [Suspect]
     Active Substance: CORTISONE
     Indication: PREMEDICATION
     Route: 042
     Dates: start: 20180509
  7. CORTISONE [Suspect]
     Active Substance: CORTISONE
     Dosage: ONCE
     Route: 065
     Dates: start: 202010
  8. CORTISONE [Suspect]
     Active Substance: CORTISONE
     Dosage: 1X 1000 MG
     Route: 065
     Dates: start: 202007
  9. OCREVUS [Suspect]
     Active Substance: OCRELIZUMAB
     Route: 042
     Dates: start: 20190815
  10. CORTISONE [Suspect]
     Active Substance: CORTISONE
     Dosage: FIVE TIMES
     Route: 065
     Dates: start: 202010
  11. OCREVUS [Suspect]
     Active Substance: OCRELIZUMAB
     Route: 042
     Dates: start: 20180525
  12. CORTISONE [Suspect]
     Active Substance: CORTISONE
     Dosage: ONCE
     Route: 065
     Dates: start: 202010
  13. CORTISONE [Suspect]
     Active Substance: CORTISONE
     Route: 042
     Dates: start: 20180525
  14. CORTISONE [Suspect]
     Active Substance: CORTISONE
     Route: 042
     Dates: start: 20181220
  15. OCREVUS [Suspect]
     Active Substance: OCRELIZUMAB
     Indication: RELAPSING-REMITTING MULTIPLE SCLEROSIS
     Route: 042
     Dates: start: 20180509
  16. VESICARE [Concomitant]
     Active Substance: SOLIFENACIN SUCCINATE
  17. GABAPENTIN. [Concomitant]
     Active Substance: GABAPENTIN

REACTIONS (7)
  - Fluid retention [Recovered/Resolved]
  - Oral herpes [Recovered/Resolved]
  - Prescribed overdose [Unknown]
  - Sleep disorder [Recovered/Resolved]
  - Paraesthesia [Not Recovered/Not Resolved]
  - B-lymphocyte count decreased [Not Recovered/Not Resolved]
  - Malaise [Recovered/Resolved]

NARRATIVE: CASE EVENT DATE: 20180509
